FAERS Safety Report 4497007-5 (Version None)
Quarter: 2004Q3

REPORT INFORMATION
  Report Type: 
  Country: None (occurrence: None)
  Receive Date: 20040928
  Receipt Date: 20040802
  Transmission Date: 20050211
  Serious: No
  Sender: FDA-Public Use
  Company Number: 04P-163-0268903-00

PATIENT
  Age: 48 Year
  Sex: Female

DRUGS (11)
  1. HUMIRA [Suspect]
     Indication: RHEUMATOID ARTHRITIS
     Dosage: 40 MG, 1 IN 2 WK, SUBCUTANEOUS
     Route: 058
     Dates: start: 20040601
  2. NOVOTHYRAL [Concomitant]
  3. ZOLPIDEM TARTRATE [Concomitant]
  4. PREDNISONE [Concomitant]
  5. METHOTREXATE SODIUM [Concomitant]
  6. LANSOPRAZOLE [Concomitant]
  7. PROPACET 100 [Concomitant]
  8. TRAMADOL HCL [Concomitant]
  9. VICODIN [Concomitant]
  10. CYCLOBENZAPRINE HYDROCHLORIDE [Concomitant]
  11. LEXAPRO [Concomitant]

REACTIONS (2)
  - MIDDLE EAR EFFUSION [None]
  - SINUSITIS [None]
